FAERS Safety Report 19371925 (Version 1)
Quarter: 2021Q2

REPORT INFORMATION
  Report Type: Spontaneous
  Country: PL (occurrence: PL)
  Receive Date: 20210604
  Receipt Date: 20210604
  Transmission Date: 20210717
  Serious: Yes (Other)
  Sender: FDA-Public Use
  Company Number: PL-TEVA-2021-PL-1918139

PATIENT
  Age: 53 Year
  Sex: Male
  Weight: 88 kg

DRUGS (3)
  1. OXALIPLATIN. [Suspect]
     Active Substance: OXALIPLATIN
     Indication: COLON CANCER
     Dosage: 178.5MG
     Route: 042
     Dates: start: 20180327, end: 20180731
  2. CALCIUM FOLINATE [Suspect]
     Active Substance: LEUCOVORIN CALCIUM
     Indication: COLON CANCER
     Dosage: 420MG
     Route: 042
     Dates: start: 20180327, end: 20180731
  3. FLUOROURACIL. [Suspect]
     Active Substance: FLUOROURACIL
     Indication: COLON CANCER
     Dosage: DOSE: 1260 MG ? DRIP, 840 MG ? BOLUS
     Route: 042
     Dates: start: 20180327, end: 20180731

REACTIONS (1)
  - Neutropenia [Unknown]

NARRATIVE: CASE EVENT DATE: 20180821
